FAERS Safety Report 11126307 (Version 2)
Quarter: 2015Q2

REPORT INFORMATION
  Report Type: Spontaneous
  Country: US (occurrence: US)
  Receive Date: 20150520
  Receipt Date: 20150615
  Transmission Date: 20150821
  Serious: Yes (Hospitalization)
  Sender: FDA-Public Use
  Company Number: US-BAYER-2015-224245

PATIENT
  Age: 49 Year
  Sex: Female

DRUGS (6)
  1. BETASERON [Suspect]
     Active Substance: INTERFERON BETA-1B
     Indication: RELAPSING-REMITTING MULTIPLE SCLEROSIS
     Dosage: UNK MIU, QOD
     Route: 058
     Dates: end: 20120116
  2. BETASERON [Suspect]
     Active Substance: INTERFERON BETA-1B
     Indication: RELAPSING-REMITTING MULTIPLE SCLEROSIS
     Dosage: UNK
     Dates: start: 20090815
  3. RAYVIST [Suspect]
     Active Substance: MEGLUMINE IOGLICATE
     Dosage: UNK
  4. BETASERON [Suspect]
     Active Substance: INTERFERON BETA-1B
     Indication: RELAPSING-REMITTING MULTIPLE SCLEROSIS
     Dosage: UNK
     Dates: start: 20071114, end: 20080105
  5. BETASERON [Suspect]
     Active Substance: INTERFERON BETA-1B
     Indication: RELAPSING-REMITTING MULTIPLE SCLEROSIS
     Dosage: UNK
     Dates: start: 20080108, end: 20090720
  6. BETASERON [Suspect]
     Active Substance: INTERFERON BETA-1B
     Indication: RELAPSING-REMITTING MULTIPLE SCLEROSIS
     Dosage: 8 MIU, UNK
     Route: 058
     Dates: start: 20150416

REACTIONS (9)
  - Feeling abnormal [None]
  - Pain [Recovered/Resolved]
  - Product taste abnormal [Recovered/Resolved]
  - Drug ineffective [None]
  - Hospitalisation [None]
  - Intentional product misuse [None]
  - Headache [Recovered/Resolved]
  - Injection site pain [Recovered/Resolved]
  - Product use issue [None]

NARRATIVE: CASE EVENT DATE: 20071114
